FAERS Safety Report 8642326 (Version 3)
Quarter: 2012Q4

REPORT INFORMATION
  Report Type: 
  Country: GB (occurrence: GB)
  Receive Date: 20120628
  Receipt Date: 20121022
  Transmission Date: 20130627
  Serious: Yes (Other)
  Sender: FDA-Public Use
  Company Number: GB-TEVA-343847ISR

PATIENT
  Age: 61 Year
  Sex: Female
  Weight: 60 kg

DRUGS (1)
  1. AZILECT [Suspect]
     Indication: PARKINSON^S DISEASE
     Route: 048
     Dates: start: 2011, end: 201204

REACTIONS (3)
  - Musculoskeletal pain [Recovered/Resolved]
  - Tendonitis [Recovered/Resolved]
  - Arthralgia [Recovered/Resolved]
